FAERS Safety Report 7534706-2 (Version None)
Quarter: 2011Q2

REPORT INFORMATION
  Report Type: 
  Country: None (occurrence: None)
  Receive Date: 20110609
  Receipt Date: 20110520
  Transmission Date: 20111010
  Serious: Yes (Disabling, Other)
  Sender: FDA-Public Use
  Company Number: PHHY2011JP15330

PATIENT
  Sex: Female
  Weight: 45 kg

DRUGS (9)
  1. ALISKIREN [Suspect]
     Indication: HYPERTENSION
     Dosage: 150 MG, DAILY
     Route: 048
     Dates: start: 20100126
  2. ASPIRIN [Concomitant]
     Dosage: 100 MG, UNK
     Route: 048
     Dates: start: 20061212
  3. FRANDOL [Concomitant]
     Dosage: 40 MG, UNK
     Dates: start: 20061212
  4. SYMMETREL [Concomitant]
     Dosage: 50 MG, UNK
     Route: 048
     Dates: start: 20070101
  5. LANSOPRAZOLE [Concomitant]
     Dosage: 15 MG, UNK
     Route: 048
     Dates: start: 20100914
  6. MAGNESIUM OXIDE [Concomitant]
     Dosage: 1 G, UNK
     Route: 048
     Dates: start: 20061113
  7. DEPAS [Concomitant]
     Dosage: 0.3 MG, UNK
     Route: 048
     Dates: start: 20061113
  8. NORVASC [Concomitant]
     Indication: HYPERTENSION
     Dosage: 2.5 MG, UNK
     Route: 048
     Dates: start: 20061113, end: 20100125
  9. ROHYPNOL [Concomitant]
     Dosage: 1 MG, UNK
     Route: 048
     Dates: start: 20080618, end: 20110201

REACTIONS (5)
  - HEART RATE INCREASED [None]
  - GLYCOSYLATED HAEMOGLOBIN INCREASED [None]
  - BLOOD POTASSIUM INCREASED [None]
  - CEREBRAL INFARCTION [None]
  - BLOOD PRESSURE DIASTOLIC DECREASED [None]
